FAERS Safety Report 5191889-X (Version None)
Quarter: 2006Q4

REPORT INFORMATION
  Report Type: 
  Country: None (occurrence: None)
  Receive Date: 20061220
  Receipt Date: 20061206
  Transmission Date: 20070319
  Serious: Yes (Hospitalization)
  Sender: FDA-Public Use
  Company Number: 2006BI017803

PATIENT
  Sex: Female

DRUGS (1)
  1. AVONEX [Suspect]
     Indication: DRUG USE FOR UNKNOWN INDICATION
     Dosage: IM
     Route: 030

REACTIONS (6)
  - APHASIA [None]
  - CONVULSION [None]
  - MEMORY IMPAIRMENT [None]
  - MUSCLE DISORDER [None]
  - PAIN [None]
  - PARALYSIS [None]
